FAERS Safety Report 10100201 (Version 2)
Quarter: 2014Q2

REPORT INFORMATION
  Report Type: Spontaneous
  Country: US (occurrence: US)
  Receive Date: 20140423
  Receipt Date: 20140423
  Transmission Date: 20141212
  Serious: No
  Sender: FDA-Public Use
  Company Number: US-GILEAD-2013-0075583

PATIENT
  Sex: Male

DRUGS (6)
  1. LETAIRIS [Suspect]
     Indication: PULMONARY ARTERIAL HYPERTENSION
     Dosage: 5 MG, QD
     Dates: start: 20130502, end: 20130701
  2. LETAIRIS [Suspect]
     Dosage: 10 MG, QD
     Dates: start: 20130510
  3. LETAIRIS [Suspect]
     Dosage: 5 MG, QD
  4. ADCIRCA [Concomitant]
  5. EPOPROSTENOL [Concomitant]
  6. VELETRI [Concomitant]

REACTIONS (2)
  - Unevaluable event [Unknown]
  - Headache [Unknown]
